FAERS Safety Report 9921388 (Version 1)
Quarter: 2014Q1

REPORT INFORMATION
  Report Type: Spontaneous
  Country: US (occurrence: None)
  Receive Date: 20140221
  Receipt Date: 20140221
  Transmission Date: 20141002
  Serious: No
  Sender: FDA-Public Use
  Company Number: None

PATIENT
  Age: 74 Year
  Sex: Male

DRUGS (1)
  1. AFINITOR [Suspect]
     Route: 048
     Dates: start: 20140128, end: 20140210

REACTIONS (2)
  - Chest pain [None]
  - Pain in jaw [None]
